FAERS Safety Report 4359882-4 (Version None)
Quarter: 2004Q2

REPORT INFORMATION
  Report Type: 
  Country: None (occurrence: None)
  Receive Date: 20040517
  Receipt Date: 20040517
  Transmission Date: 20050107
  Serious: No
  Sender: FDA-Public Use
  Company Number: None

PATIENT
  Age: 76 Year
  Sex: Female
  Weight: 120 kg

DRUGS (11)
  1. SIMVASTATIN [Suspect]
     Indication: HYPERLIPIDAEMIA
     Dosage: 20 MG HS
  2. AMIODARONE HCL [Concomitant]
  3. CALCIUM CONCENTRATE [Concomitant]
  4. CARVEDILOL [Concomitant]
  5. FERROUS SULFATE TAB [Concomitant]
  6. HYDROCHLOROTHIAZIDE [Concomitant]
  7. LANSOPRAZOL [Concomitant]
  8. LOSARTAN POTASSIUM [Concomitant]
  9. ROSIGLITAZONE MALEATE [Concomitant]
  10. SERTRALINE [Concomitant]
  11. MONTELUKAST [Concomitant]

REACTIONS (1)
  - MYOGLOBIN BLOOD INCREASED [None]
